FAERS Safety Report 11354713 (Version 1)
Quarter: 2015Q3

REPORT INFORMATION
  Report Type: Spontaneous
  Country: US (occurrence: US)
  Receive Date: 20150807
  Receipt Date: 20150807
  Transmission Date: 20151125
  Serious: No
  Sender: FDA-Public Use
  Company Number: US-JNJFOC-20140805076

PATIENT
  Sex: Male
  Weight: 71.22 kg

DRUGS (9)
  1. ROGAINE 5% [Suspect]
     Active Substance: MINOXIDIL
     Indication: ALOPECIA
     Dosage: LESS THAN HALF A CAP, TWICE A DAY
     Route: 061
  2. LATANOPROST. [Concomitant]
     Active Substance: LATANOPROST
     Indication: GLAUCOMA
     Route: 065
  3. PROPECIA [Concomitant]
     Active Substance: FINASTERIDE
     Indication: HAIR DISORDER
     Route: 065
  4. VITAMIN D [Concomitant]
     Active Substance: CHOLECALCIFEROL
     Indication: ROUTINE HEALTH MAINTENANCE
     Route: 065
  5. ROGAINE 5% [Suspect]
     Active Substance: MINOXIDIL
     Route: 061
  6. ATENOLOL. [Concomitant]
     Active Substance: ATENOLOL
     Indication: BLOOD PRESSURE MEASUREMENT
     Route: 065
  7. VIAGRA [Concomitant]
     Active Substance: SILDENAFIL CITRATE
     Indication: LOSS OF LIBIDO
     Route: 065
  8. FLUNISOLIDE. [Concomitant]
     Active Substance: FLUNISOLIDE
     Indication: NASAL DISORDER
     Route: 065
  9. WARFARIN [Concomitant]
     Active Substance: WARFARIN
     Indication: ANTICOAGULANT THERAPY
     Route: 065

REACTIONS (5)
  - Paraesthesia [Recovered/Resolved]
  - Pruritus [Recovered/Resolved]
  - Wrong technique in product usage process [Unknown]
  - Feeling abnormal [Recovered/Resolved]
  - Diarrhoea [Unknown]
